FAERS Safety Report 6803716-2 (Version None)
Quarter: 2010Q2

REPORT INFORMATION
  Report Type: 
  Country: None (occurrence: None)
  Receive Date: 20100628
  Receipt Date: 20100628
  Transmission Date: 20101027
  Serious: Yes (Life-Threatening)
  Sender: FDA-Public Use
  Company Number: None

PATIENT
  Age: 50 Year
  Sex: Female
  Weight: 86.637 kg

DRUGS (10)
  1. LEVAQUIN [Suspect]
     Indication: DIVERTICULUM
     Dosage: 1 TABLET DAILY PO
     Route: 048
     Dates: start: 20100625, end: 20100625
  2. CLONOPIN [Concomitant]
  3. LAMICTAL [Concomitant]
  4. ZONEGRAN [Concomitant]
  5. WELLBUTRIN [Concomitant]
  6. SEROQUEL [Concomitant]
  7. ADVAIR DISKUS 100/50 [Concomitant]
  8. ZOCOR [Concomitant]
  9. BENCHOL [Concomitant]
  10. MAXCIDE [Concomitant]

REACTIONS (4)
  - CERVICAL VERTEBRAL FRACTURE [None]
  - DEPRESSION [None]
  - MANIA [None]
  - MUSCLE STRAIN [None]
